FAERS Safety Report 25160025 (Version 1)
Quarter: 2025Q2

REPORT INFORMATION
  Report Type: Spontaneous
  Country: US (occurrence: US)
  Receive Date: 20250404
  Receipt Date: 20250404
  Transmission Date: 20250717
  Serious: Yes (Hospitalization, Other)
  Sender: AUROBINDO
  Company Number: US-AUROBINDO-AUR-APL-2025-012672

PATIENT
  Age: 83 Year
  Sex: Male

DRUGS (1)
  1. CLOZAPINE [Suspect]
     Active Substance: CLOZAPINE
     Indication: Product used for unknown indication
     Route: 065

REACTIONS (5)
  - Sepsis [Unknown]
  - Neutrophilia [Unknown]
  - Mental status changes [Unknown]
  - Hypertension [Unknown]
  - Therapy interrupted [Unknown]
